FAERS Safety Report 4991505-3 (Version None)
Quarter: 2006Q2

REPORT INFORMATION
  Report Type: 
  Country: None (occurrence: None)
  Receive Date: 20060502
  Receipt Date: 20060417
  Transmission Date: 20061013
  Serious: Yes (Death)
  Sender: FDA-Public Use
  Company Number: PHO-2005-026

PATIENT
  Age: 46 Year
  Sex: Female

DRUGS (2)
  1. PHOTOFRIN [Suspect]
     Indication: METASTASES TO PLEURA
     Dosage: 2 MG/KG, IV
     Route: 042
     Dates: start: 20000706
  2. PHOTOFRIN [Suspect]
     Indication: NON-SMALL CELL LUNG CANCER
     Dosage: 2 MG/KG, IV
     Route: 042
     Dates: start: 20000706

REACTIONS (12)
  - ACIDOSIS [None]
  - ACTIVATED PARTIAL THROMBOPLASTIN TIME PROLONGED [None]
  - ACUTE RESPIRATORY DISTRESS SYNDROME [None]
  - COAGULOPATHY [None]
  - HYPERGLYCAEMIA [None]
  - HYPOTENSION [None]
  - LIVER FUNCTION TEST ABNORMAL [None]
  - MULTI-ORGAN FAILURE [None]
  - RENAL FAILURE [None]
  - THERAPY NON-RESPONDER [None]
  - THROMBOCYTOPENIA [None]
  - TRANSAMINASES INCREASED [None]
